FAERS Safety Report 7052337-8 (Version None)
Quarter: 2010Q4

REPORT INFORMATION
  Report Type: 
  Country: None (occurrence: None)
  Receive Date: 20101014
  Receipt Date: 20100930
  Transmission Date: 20110411
  Serious: Yes (Hospitalization)
  Sender: FDA-Public Use
  Company Number: 020089

PATIENT
  Sex: Male
  Weight: 118 kg

DRUGS (1)
  1. CIMZIA [Suspect]
     Indication: CROHN'S DISEASE
     Dosage: SUBCUTANEOUS
     Route: 058
     Dates: start: 20100428

REACTIONS (3)
  - ABDOMINAL ABSCESS [None]
  - CONDITION AGGRAVATED [None]
  - CROHN'S DISEASE [None]
